FAERS Safety Report 6524756-7 (Version None)
Quarter: 2009Q4

REPORT INFORMATION
  Report Type: 
  Country: None (occurrence: None)
  Receive Date: 20091230
  Receipt Date: 20091230
  Transmission Date: 20100525
  Serious: Yes (Other)
  Sender: FDA-Public Use
  Company Number: None

PATIENT
  Age: 61 Year
  Sex: Male
  Weight: 68.0396 kg

DRUGS (2)
  1. ENBREL [Suspect]
     Indication: ARTHRITIS
     Dosage: 25 MG 2 VIAL WK I.M.
     Route: 030
     Dates: start: 20090105, end: 20090415
  2. ENBREL [Suspect]
     Indication: PSORIASIS
     Dosage: 25 MG 2 VIAL WK I.M.
     Route: 030
     Dates: start: 20090105, end: 20090415

REACTIONS (3)
  - CONDITION AGGRAVATED [None]
  - HEADACHE [None]
  - PSORIASIS [None]
